FAERS Safety Report 8902913 (Version 5)
Quarter: 2014Q3

REPORT INFORMATION
  Report Type: Spontaneous
  Country: US (occurrence: US)
  Receive Date: 20121112
  Receipt Date: 20140909
  Transmission Date: 20150326
  Serious: Yes (Disabling, Other)
  Sender: FDA-Public Use
  Company Number: US-009507513-1211USA003001

PATIENT
  Sex: Male

DRUGS (7)
  1. VALIUM [Concomitant]
     Active Substance: DIAZEPAM
     Indication: ANXIETY
     Dosage: UNK
     Route: 048
     Dates: start: 2001
  2. WELLBUTRIN [Concomitant]
     Active Substance: BUPROPION HYDROCHLORIDE
     Dosage: UNK
     Route: 048
     Dates: start: 2002, end: 2010
  3. PROPECIA [Suspect]
     Active Substance: FINASTERIDE
     Indication: ANDROGENETIC ALOPECIA
     Dosage: 1 MG, QD
     Route: 048
     Dates: start: 20090521, end: 20101214
  4. XANAX [Concomitant]
     Active Substance: ALPRAZOLAM
     Indication: ANXIETY
     Dosage: UNK
     Route: 048
     Dates: start: 2001
  5. PEPCID [Concomitant]
     Active Substance: FAMOTIDINE
     Indication: GASTROOESOPHAGEAL REFLUX DISEASE
     Dosage: UNK
     Route: 048
     Dates: start: 2007
  6. VALIUM [Concomitant]
     Active Substance: DIAZEPAM
     Indication: POST-TRAUMATIC STRESS DISORDER
  7. XANAX [Concomitant]
     Active Substance: ALPRAZOLAM
     Indication: POST-TRAUMATIC STRESS DISORDER

REACTIONS (29)
  - Blood testosterone decreased [Not Recovered/Not Resolved]
  - Infertility [Not Recovered/Not Resolved]
  - Anxiety [Not Recovered/Not Resolved]
  - Borderline personality disorder [Unknown]
  - Adverse drug reaction [Unknown]
  - Hypospermia [Unknown]
  - Arthroscopic surgery [Unknown]
  - Agitation [Unknown]
  - Alopecia [Unknown]
  - Asthma [Unknown]
  - Loss of libido [Not Recovered/Not Resolved]
  - Anaemia [Unknown]
  - Eye disorder [Unknown]
  - Fall [Unknown]
  - Sinusitis [Unknown]
  - Sexual dysfunction [Unknown]
  - Pancreatitis [Unknown]
  - Amnesia [Unknown]
  - Stress [Unknown]
  - Erectile dysfunction [Not Recovered/Not Resolved]
  - Gynaecomastia [Not Recovered/Not Resolved]
  - Hypertension [Not Recovered/Not Resolved]
  - Rhinitis [Unknown]
  - Depression [Not Recovered/Not Resolved]
  - Endocrine disorder [Unknown]
  - Arthroscopic surgery [Unknown]
  - Movement disorder [Unknown]
  - Rotator cuff syndrome [Unknown]
  - Pruritus [Unknown]

NARRATIVE: CASE EVENT DATE: 201103
